FAERS Safety Report 8141304-9 (Version None)
Quarter: 2012Q1

REPORT INFORMATION
  Report Type: 
  Country: None (occurrence: None)
  Receive Date: 20120216
  Receipt Date: 20120205
  Transmission Date: 20120608
  Serious: Yes (Other)
  Sender: FDA-Public Use
  Company Number: BR-ELI_LILLY_AND_COMPANY-BR201111006576

PATIENT
  Age: 22 Year
  Sex: Female
  Weight: 96 kg

DRUGS (6)
  1. ZYPREXA [Suspect]
     Dosage: 2.5 MG, PRN
     Route: 065
  2. TEGRETOL [Concomitant]
     Dosage: 400 MG, BID
     Route: 065
  3. ZYPREXA [Suspect]
     Indication: HALLUCINATION
     Dosage: 10 MG, QD
     Route: 065
     Dates: start: 20090101
  4. ZYPREXA [Suspect]
     Dosage: 7.5 MG, QD
     Route: 065
  5. PRAMIPEXOLE DIHYDROCHLORIDE [Concomitant]
     Dosage: 0.25 MG, TID
     Route: 065
  6. ZYPREXA [Suspect]
     Dosage: 5 MG, UNK
     Route: 065

REACTIONS (4)
  - COORDINATION ABNORMAL [None]
  - GAIT DISTURBANCE [None]
  - DYSSTASIA [None]
  - MOVEMENT DISORDER [None]
